FAERS Safety Report 7910614-X (Version None)
Quarter: 2011Q4

REPORT INFORMATION
  Report Type: 
  Country: None (occurrence: None)
  Receive Date: 20111111
  Receipt Date: 20111102
  Transmission Date: 20120403
  Serious: Yes (Other)
  Sender: FDA-Public Use
  Company Number: JP-ASTRAZENECA-2011SE66844

PATIENT
  Age: 36 Year
  Sex: Female
  Weight: 66 kg

DRUGS (4)
  1. REMIFENTANIL [Concomitant]
  2. FENTANYL [Concomitant]
  3. ROPIVACAINE HYDROCHLORIDE [Suspect]
     Dosage: 20 ML EACH IN THE RIGHT AND LEFT FIELDS
     Route: 053
  4. SEVOFLURANE [Concomitant]

REACTIONS (1)
  - TOXICITY TO VARIOUS AGENTS [None]
